FAERS Safety Report 11664018 (Version 1)
Quarter: 2015Q4

REPORT INFORMATION
  Report Type: Spontaneous
  Country: US (occurrence: None)
  Receive Date: 20151026
  Receipt Date: 20151026
  Transmission Date: 20160304
  Serious: Yes (Other)
  Sender: FDA-Public Use
  Company Number: None

PATIENT
  Age: 38 Year
  Sex: Female
  Weight: 104.33 kg

DRUGS (1)
  1. SULFAMETHOXAZOLE-TMP DS [Suspect]
     Active Substance: SULFAMETHOXAZOLE\TRIMETHOPRIM
     Indication: URINARY TRACT INFECTION
     Dosage: 10/19/2016
     Route: 048

REACTIONS (11)
  - Tremor [None]
  - Visual impairment [None]
  - Dyspnoea [None]
  - Confusional state [None]
  - Neck pain [None]
  - Chills [None]
  - Hot flush [None]
  - Musculoskeletal stiffness [None]
  - Sensory loss [None]
  - Musculoskeletal pain [None]
  - Movement disorder [None]

NARRATIVE: CASE EVENT DATE: 20151022
